FAERS Safety Report 21205025 (Version 1)
Quarter: 2022Q3

REPORT INFORMATION
  Report Type: Spontaneous
  Country: US (occurrence: US)
  Receive Date: 20220812
  Receipt Date: 20220812
  Transmission Date: 20221027
  Serious: Yes (Other)
  Sender: FDA-Public Use
  Company Number: US-AUROBINDO-AUR-APL-2022-032331

PATIENT
  Age: 11 Month
  Sex: Male

DRUGS (6)
  1. CYCLOPHOSPHAMIDE [Suspect]
     Active Substance: CYCLOPHOSPHAMIDE
     Indication: Osteoma cutis
     Dosage: UNK UNK, CYCLICAL (THREE CYCLES)
     Route: 065
  2. CARBOPLATIN [Suspect]
     Active Substance: CARBOPLATIN
     Indication: Osteoma cutis
     Dosage: UNK
     Route: 065
  3. CISPLATIN [Suspect]
     Active Substance: CISPLATIN
     Indication: Osteoma cutis
     Dosage: UNK UNK, CYCLICAL (THREE CYCLES)
     Route: 065
  4. ETOPOSIDE [Suspect]
     Active Substance: ETOPOSIDE
     Indication: Osteoma cutis
     Dosage: UNK UNK, CYCLICAL (THREE CYCLES)
     Route: 065
  5. THIOTEPA [Suspect]
     Active Substance: THIOTEPA
     Indication: Osteoma cutis
     Dosage: UNK
     Route: 065
  6. VINCRISTINE SULFATE [Suspect]
     Active Substance: VINCRISTINE SULFATE
     Indication: Osteoma cutis
     Dosage: UNK, CYCLICAL (THREE CYCLES)
     Route: 065

REACTIONS (3)
  - Myelosuppression [Unknown]
  - Mucosal inflammation [Unknown]
  - Dysphagia [Unknown]
